FAERS Safety Report 16953662 (Version 1)
Quarter: 2019Q4

REPORT INFORMATION
  Report Type: Spontaneous
  Country: US (occurrence: US)
  Receive Date: 20191023
  Receipt Date: 20191023
  Transmission Date: 20200122
  Serious: No
  Sender: FDA-Public Use
  Company Number: US-DERMIRA, INC.-US-2019DER000491

PATIENT
  Age: 38 Year
  Sex: Female
  Weight: 68.27 kg

DRUGS (2)
  1. SPIRONOLACTONE. [Concomitant]
     Active Substance: SPIRONOLACTONE
     Indication: ACNE
     Dosage: UNK
  2. QBREXZA [Suspect]
     Active Substance: GLYCOPYRRONIUM TOSYLATE
     Indication: PRODUCT USED FOR UNKNOWN INDICATION
     Dosage: UNK
     Route: 061
     Dates: start: 2019, end: 20190923

REACTIONS (3)
  - Dry mouth [Not Recovered/Not Resolved]
  - Mydriasis [Not Recovered/Not Resolved]
  - Vision blurred [Recovering/Resolving]

NARRATIVE: CASE EVENT DATE: 20190924
